FAERS Safety Report 7586069-4 (Version None)
Quarter: 2011Q3

REPORT INFORMATION
  Report Type: 
  Country: None (occurrence: None)
  Receive Date: 20110701
  Receipt Date: 20110620
  Transmission Date: 20111222
  Serious: Yes (Hospitalization)
  Sender: FDA-Public Use
  Company Number: JP-ASTRAZENECA-2010SE50034

PATIENT
  Age: 27312 Day
  Sex: Female
  Weight: 71 kg

DRUGS (28)
  1. TENAXIL [Suspect]
     Indication: HYPERTENSION
     Route: 048
     Dates: start: 20051012, end: 20081222
  2. SILECE [Concomitant]
     Indication: AUTONOMIC NERVOUS SYSTEM IMBALANCE
     Route: 048
  3. NELBIS [Concomitant]
     Indication: DIABETES MELLITUS
     Route: 048
  4. LOXONIN [Suspect]
     Indication: METASTASES TO BONE
     Route: 048
  5. NIFLAN [Concomitant]
     Indication: CATARACT
     Dosage: FOUR TIMES A DAY
     Route: 047
  6. LANDEL 40 [Concomitant]
     Indication: HYPERTENSION
     Route: 048
     Dates: start: 20060302
  7. ALPRAZOLAM [Concomitant]
     Indication: AUTONOMIC NERVOUS SYSTEM IMBALANCE
     Route: 048
  8. POSTERISAN [Concomitant]
     Indication: HAEMORRHOIDS
     Route: 062
  9. NORVASC [Concomitant]
     Indication: HYPERTENSION
     Route: 048
     Dates: start: 20050819
  10. BISOPROLOL FUMARATE [Concomitant]
     Indication: HYPERTENSION
     Route: 048
     Dates: start: 20051116
  11. DIOVAN [Concomitant]
     Indication: HYPERTENSION
     Route: 048
     Dates: start: 20051216
  12. ZOMETA [Concomitant]
     Dates: start: 20060828, end: 20070507
  13. CANDESARTAN CILEXETIL AND HYDROCHLOROTHIAZIDE [Concomitant]
     Indication: HYPERTENSION
     Route: 048
     Dates: start: 20101012
  14. MOHRUS TAPE [Concomitant]
     Indication: ANALGESIC THERAPY
     Dosage: OPTIMAL DOSE
     Route: 062
  15. CEROCRAL [Concomitant]
     Indication: DIZZINESS
     Route: 048
  16. RHUBARB [Concomitant]
     Indication: GASTRITIS PROPHYLAXIS
     Route: 048
  17. SELBEX [Concomitant]
     Indication: GASTRITIS PROPHYLAXIS
     Route: 048
     Dates: start: 20051026
  18. AROMASIN [Suspect]
     Indication: BREAST CANCER
     Route: 048
     Dates: start: 20081209, end: 20101213
  19. RHYTHMY [Concomitant]
     Indication: INSOMNIA
     Route: 048
     Dates: start: 20050713
  20. ZOMETA [Concomitant]
     Indication: BREAST CANCER
     Route: 048
     Dates: start: 20060828, end: 20060828
  21. ZOMETA [Concomitant]
     Dates: start: 20060828, end: 20070507
  22. YODEL-S [Concomitant]
     Indication: CONSTIPATION
     Route: 048
     Dates: start: 20070427
  23. ATELEC [Concomitant]
     Indication: HYPERTENSION
     Route: 048
     Dates: start: 20090428
  24. ARIMIDEX [Suspect]
     Indication: BREAST CANCER
     Route: 048
     Dates: start: 20050704, end: 20081207
  25. HEMOCURON [Concomitant]
     Indication: HAEMORRHOIDS
     Route: 048
  26. BUFFERIN [Concomitant]
     Indication: CEREBRAL INFARCTION
     Route: 048
     Dates: end: 20061114
  27. HEAVY MAGNESIUM OXIDE [Concomitant]
     Indication: GASTRITIS PROPHYLAXIS
     Route: 048
  28. ZOMETA [Concomitant]
     Indication: METASTASES TO BONE
     Route: 048
     Dates: start: 20060828, end: 20060828

REACTIONS (3)
  - HUMERUS FRACTURE [None]
  - FISTULA [None]
  - NEPHROGENIC ANAEMIA [None]
